FAERS Safety Report 26084682 (Version 1)
Quarter: 2025Q4

REPORT INFORMATION
  Report Type: Spontaneous
  Country: JP (occurrence: JP)
  Receive Date: 20251124
  Receipt Date: 20251124
  Transmission Date: 20260117
  Serious: Yes (Other)
  Sender: NOVARTIS
  Company Number: JP-002147023-NVSJ2025JP011185

PATIENT
  Age: 83 Year
  Sex: Female

DRUGS (1)
  1. ENTRESTO [Suspect]
     Active Substance: SACUBITRIL\VALSARTAN
     Indication: Hypertension
     Dosage: 50 MG, BID,MORNING AND EVENING
     Route: 048
     Dates: start: 202502

REACTIONS (5)
  - Cataract [Unknown]
  - Pulse abnormal [Unknown]
  - Blood pressure increased [Unknown]
  - Middle insomnia [Unknown]
  - Off label use [Unknown]
